FAERS Safety Report 9012993 (Version 2)
Quarter: 2013Q1

REPORT INFORMATION
  Report Type: Spontaneous
  Country: CN (occurrence: CN)
  Receive Date: 20130114
  Receipt Date: 20130125
  Transmission Date: 20140127
  Serious: Yes (Other)
  Sender: FDA-Public Use
  Company Number: CN-JNJFOC-20130103832

PATIENT
  Sex: 0

DRUGS (1)
  1. RISPERIDONE [Suspect]
     Indication: SCHIZOPHRENIA
     Route: 065

REACTIONS (16)
  - Liver function test abnormal [Unknown]
  - Myotonia [Unknown]
  - Vision blurred [Unknown]
  - Tachycardia [Unknown]
  - Galactorrhoea [Unknown]
  - Constipation [Unknown]
  - Nausea [Unknown]
  - Vomiting [Unknown]
  - Decreased appetite [Unknown]
  - Tremor [Unknown]
  - Akathisia [Unknown]
  - Dry mouth [Unknown]
  - Insomnia [Unknown]
  - Somnolence [Unknown]
  - Dizziness [Unknown]
  - Headache [Unknown]
